FAERS Safety Report 5986644-4 (Version None)
Quarter: 2008Q4

REPORT INFORMATION
  Report Type: 
  Country: None (occurrence: None)
  Receive Date: 20081209
  Receipt Date: 20081205
  Transmission Date: 20090506
  Serious: Yes (Other)
  Sender: FDA-Public Use
  Company Number: US-BRISTOL-MYERS SQUIBB COMPANY-14433601

PATIENT
  Age: 75 Year
  Sex: Male

DRUGS (2)
  1. DASATINIB [Suspect]
     Indication: PROSTATE CANCER
  2. DOCETAXEL [Suspect]
     Indication: PROSTATE CANCER

REACTIONS (1)
  - PULMONARY EMBOLISM [None]
